FAERS Safety Report 5772980-3 (Version None)
Quarter: 2008Q2

REPORT INFORMATION
  Report Type: 
  Country: None (occurrence: None)
  Receive Date: 20080611
  Receipt Date: 20080523
  Transmission Date: 20081010
  Serious: Yes (Other)
  Sender: FDA-Public Use
  Company Number: 80791

PATIENT
  Age: 30 Year
  Sex: Female
  Weight: 49.8957 kg

DRUGS (2)
  1. ACETAMINOPHEN [Suspect]
     Dosage: 1 OR 2 TABLETS/ X1/ ORALLY
     Route: 048
     Dates: start: 20080115, end: 20080115
  2. UNSPECIFIED PAIN MEDICATION [Concomitant]

REACTIONS (1)
  - DRUG HYPERSENSITIVITY [None]
